FAERS Safety Report 11748967 (Version 10)
Quarter: 2018Q1

REPORT INFORMATION
  Report Type: Spontaneous
  Country: US (occurrence: US)
  Receive Date: 20151118
  Receipt Date: 20180228
  Transmission Date: 20180508
  Serious: Yes (Other)
  Sender: FDA-Public Use
  Company Number: PHEH2015US023772

PATIENT
  Age: 31 Year
  Sex: Female

DRUGS (3)
  1. ONDANSETRON TEVA//ONDANSETRON [Suspect]
     Active Substance: ONDANSETRON
     Indication: VOMITING IN PREGNANCY
     Dosage: 4 MG, PRN
     Route: 048
     Dates: start: 20140326, end: 2014
  2. ZOFRAN [Suspect]
     Active Substance: ONDANSETRON HYDROCHLORIDE
     Indication: VOMITING IN PREGNANCY
     Route: 048
  3. ONDANSETRON HYDROCHLORIDE. [Suspect]
     Active Substance: ONDANSETRON HYDROCHLORIDE
     Indication: PRODUCT USED FOR UNKNOWN INDICATION
     Route: 048

REACTIONS (30)
  - Stress [Unknown]
  - Abdominal discomfort [Unknown]
  - Constipation [Unknown]
  - Gestational diabetes [Unknown]
  - Premature delivery [Unknown]
  - Arterial disorder [Unknown]
  - Dermatitis contact [Unknown]
  - Abdominal pain [Unknown]
  - Nasopharyngitis [Unknown]
  - Folliculitis [Unknown]
  - Gestational hypertension [Unknown]
  - Emotional distress [Unknown]
  - Peripheral swelling [Unknown]
  - Back pain [Unknown]
  - Vaginal haemorrhage [Unknown]
  - Respiratory depression [Unknown]
  - Placental infarction [Unknown]
  - Rash [Unknown]
  - Diarrhoea [Unknown]
  - Maternal exposure during pregnancy [Unknown]
  - Pre-eclampsia [Unknown]
  - Pain [Unknown]
  - Anhedonia [Unknown]
  - Abdominal pain upper [Unknown]
  - Anxiety [Unknown]
  - Pruritus [Unknown]
  - Injury [Unknown]
  - Dysplasia [Unknown]
  - Paraesthesia [Unknown]
  - Product use in unapproved indication [Unknown]

NARRATIVE: CASE EVENT DATE: 20140903
